FAERS Safety Report 21987559 (Version 2)
Quarter: 2023Q1

REPORT INFORMATION
  Report Type: Spontaneous
  Country: DE (occurrence: None)
  Receive Date: 20230214
  Receipt Date: 20230314
  Transmission Date: 20230417
  Serious: Yes (Other)
  Sender: FDA-Public Use
  Company Number: DE-ROCHE-3283461

PATIENT
  Age: 50 Year
  Sex: Male

DRUGS (8)
  1. RITUXIMAB [Suspect]
     Active Substance: RITUXIMAB
     Indication: Diffuse large B-cell lymphoma
     Dosage: 1ST LINE SYSTEMIC TREATMENT, R-CHOP
     Route: 065
     Dates: start: 20210915, end: 20211215
  2. RITUXIMAB [Suspect]
     Active Substance: RITUXIMAB
     Dosage: 2ND LINE SYSTEMIC TREATMENT, R-DHAP 1 CYCLE
     Route: 065
     Dates: start: 20220101, end: 20220201
  3. RITUXIMAB [Suspect]
     Active Substance: RITUXIMAB
     Dosage: 3RD LINE SYSTEMIC TREATMENT, R-ICE 3 CYCLES, PR AFTER CYCLE 1, PD AFTER CYCLE 3.
     Route: 065
     Dates: start: 20220204, end: 20220420
  4. CYCLOPHOSPHAMIDE\DOXORUBICIN\PREDNISONE\VINCRISTINE [Suspect]
     Active Substance: CYCLOPHOSPHAMIDE\DOXORUBICIN\PREDNISONE\VINCRISTINE
     Indication: Diffuse large B-cell lymphoma
     Dosage: 1ST LINE SYSTEMIC TREATMENT, R-CHOP
     Route: 065
     Dates: start: 20210915, end: 20211215
  5. CISPLATIN\CYTARABINE\DEXAMETHASONE [Suspect]
     Active Substance: CISPLATIN\CYTARABINE\DEXAMETHASONE
     Indication: Diffuse large B-cell lymphoma
     Dosage: 2ND LINE SYSTEMIC TREATMENT, R-DHAP 1 CYCLE
     Route: 065
     Dates: start: 20220101, end: 20220201
  6. IFOSFAMIDE [Suspect]
     Active Substance: IFOSFAMIDE
     Indication: Diffuse large B-cell lymphoma
     Dosage: 3RD LINE SYSTEMIC TREATMENT, R-ICE 3 CYCLES, PR AFTER CYCLE 1, PD AFTER CYCLE 3.
     Route: 065
     Dates: start: 20220204, end: 20220420
  7. CARBOPLATIN [Suspect]
     Active Substance: CARBOPLATIN
     Indication: Diffuse large B-cell lymphoma
     Dosage: 3RD LINE SYSTEMIC TREATMENT, R-ICE 3 CYCLES, PR AFTER CYCLE 1, PD AFTER CYCLE 3
     Route: 065
     Dates: start: 20220204, end: 20220420
  8. ETOPOSIDE [Suspect]
     Active Substance: ETOPOSIDE

REACTIONS (2)
  - Lymphoma [Not Recovered/Not Resolved]
  - Polyneuropathy [Recovering/Resolving]

NARRATIVE: CASE EVENT DATE: 20220407
